FAERS Safety Report 24307329 (Version 4)
Quarter: 2025Q1

REPORT INFORMATION
  Report Type: Report from Study
  Country: CO (occurrence: CO)
  Receive Date: 20240911
  Receipt Date: 20250222
  Transmission Date: 20250409
  Serious: Yes (Life-Threatening, Hospitalization, Other)
  Sender: AMGEN
  Company Number: CO-AMGEN-COLSL2024089652

PATIENT
  Age: 55 Year
  Sex: Male

DRUGS (4)
  1. NPLATE [Suspect]
     Active Substance: ROMIPLOSTIM
     Indication: Immune thrombocytopenia
     Route: 058
  2. NPLATE [Suspect]
     Active Substance: ROMIPLOSTIM
     Route: 058
  3. NPLATE [Suspect]
     Active Substance: ROMIPLOSTIM
     Route: 058
  4. NPLATE [Suspect]
     Active Substance: ROMIPLOSTIM
     Route: 058

REACTIONS (3)
  - Thrombocytosis [Recovered/Resolved]
  - Thrombocytopenia [Not Recovered/Not Resolved]
  - Intentional product misuse [Recovered/Resolved]
